FAERS Safety Report 10979715 (Version 1)
Quarter: 2015Q2

REPORT INFORMATION
  Report Type: Spontaneous
  Country: US (occurrence: US)
  Receive Date: 20150402
  Receipt Date: 20150402
  Transmission Date: 20150821
  Serious: No
  Sender: FDA-Public Use
  Company Number: US-SA-2014SA064387

PATIENT
  Age: 24 Year
  Sex: Female

DRUGS (1)
  1. ALLEGRA [Suspect]
     Active Substance: FEXOFENADINE HYDROCHLORIDE
     Indication: HYPERSENSITIVITY
     Dosage: STARTED APPROXIMATELY 4 DAYS AGO AT 2 TEASPOONFUL
     Route: 048
     Dates: start: 201405, end: 20140511

REACTIONS (1)
  - Drug ineffective [Unknown]
